FAERS Safety Report 14687919 (Version 2)
Quarter: 2025Q2

REPORT INFORMATION
  Report Type: Spontaneous
  Country: CZ (occurrence: CZ)
  Receive Date: 20180328
  Receipt Date: 20250428
  Transmission Date: 20250716
  Serious: Yes (Hospitalization)
  Sender: AUROBINDO
  Company Number: CZ-LUNDBECK-DKLU2041993

PATIENT
  Age: 51 Year
  Sex: Female

DRUGS (12)
  1. ACETAMINOPHEN [Interacting]
     Active Substance: ACETAMINOPHEN
     Indication: Product used for unknown indication
     Route: 065
  2. PAROXETINE [Interacting]
     Active Substance: PAROXETINE
     Indication: Mental disorder
     Route: 065
  3. TRAMADOL [Interacting]
     Active Substance: TRAMADOL
     Indication: Product used for unknown indication
     Route: 065
  4. MELOXICAM [Interacting]
     Active Substance: MELOXICAM
     Indication: Product used for unknown indication
     Route: 065
  5. CHLORPROTHIXENE [Suspect]
     Active Substance: CHLORPROTHIXENE
     Indication: Product used for unknown indication
     Route: 065
  6. TRAZODONE [Interacting]
     Active Substance: TRAZODONE HYDROCHLORIDE
     Indication: Product used for unknown indication
     Route: 065
  7. MIDAZOLAM [Interacting]
     Active Substance: MIDAZOLAM
     Indication: Product used for unknown indication
     Route: 065
  8. HYDROCORTISONE ACETATE [Interacting]
     Active Substance: HYDROCORTISONE ACETATE
     Indication: Product used for unknown indication
     Route: 065
  9. CODEINE [Interacting]
     Active Substance: CODEINE
     Indication: Product used for unknown indication
     Route: 065
  10. IVABRADINE [Concomitant]
     Active Substance: IVABRADINE
     Indication: Sinus tachycardia
     Route: 065
  11. BROMAZEPAM [Concomitant]
     Active Substance: BROMAZEPAM
     Indication: Product used for unknown indication
     Route: 065
  12. PROCAINE HYDROCHLORIDE [Interacting]
     Active Substance: PROCAINE HYDROCHLORIDE

REACTIONS (2)
  - Serotonin syndrome [Not Recovered/Not Resolved]
  - Drug interaction [Not Recovered/Not Resolved]
